FAERS Safety Report 8903848 (Version 1)
Quarter: 2012Q4

REPORT INFORMATION
  Report Type: Report from Study
  Country: JP (occurrence: JP)
  Receive Date: 20121113
  Receipt Date: 20121113
  Transmission Date: 20130627
  Serious: Yes (Life-Threatening)
  Sender: FDA-Public Use
  Company Number: JP-VERTEX PHARMACEUTICAL INC.-AE-2012-002091

PATIENT
  Age: 64 Year
  Sex: Male

DRUGS (9)
  1. VX-950 [Suspect]
     Indication: HEPATITIS C
     Dosage: 2250 mg, qd
     Route: 048
     Dates: start: 20120202, end: 20120204
  2. VX-950 [Suspect]
     Dosage: 1500 mg, qd
     Route: 048
     Dates: start: 20120205, end: 20120205
  3. PEGINTERFERON ALFA-2B [Suspect]
     Indication: HEPATITIS C
     Dosage: 1.6 ?g/kg, qw
     Route: 058
     Dates: start: 20120202, end: 20120202
  4. RIBAVIRIN [Suspect]
     Indication: HEPATITIS C
     Dosage: 600 mg, qd
     Route: 048
     Dates: start: 20120202, end: 20120205
  5. PARIET [Concomitant]
     Route: 048
     Dates: end: 20120205
  6. MAGMITT [Concomitant]
     Route: 048
     Dates: end: 20120205
  7. EPADEL [Concomitant]
     Route: 048
     Dates: end: 20120205
  8. JANUVIA [Concomitant]
     Route: 048
     Dates: end: 20120205
  9. ACTOS [Concomitant]
     Route: 048
     Dates: end: 20120205

REACTIONS (1)
  - Drug eruption [Recovered/Resolved]
